FAERS Safety Report 19649244 (Version 1)
Quarter: 2021Q3

REPORT INFORMATION
  Report Type: Spontaneous
  Country: FR (occurrence: FR)
  Receive Date: 20210802
  Receipt Date: 20210802
  Transmission Date: 20211014
  Serious: Yes (Hospitalization)
  Sender: FDA-Public Use
  Company Number: FR-ROCHE-2879146

PATIENT
  Age: 86 Year
  Sex: Female
  Weight: 73 kg

DRUGS (9)
  1. RITUXIMAB. [Suspect]
     Active Substance: RITUXIMAB
     Indication: MARGINAL ZONE LYMPHOMA RECURRENT
     Dosage: RECEIVED ONLY ONE ADMINISTRATION
     Route: 058
     Dates: start: 20210617, end: 20210617
  2. CORTANCYL [Concomitant]
     Active Substance: PREDNISONE
     Indication: NODAL MARGINAL ZONE B-CELL LYMPHOMA
     Dosage: 60 MG/JOUR
     Dates: start: 20210328, end: 20210505
  3. CORTANCYL [Concomitant]
     Active Substance: PREDNISONE
     Dosage: 20 MG/JOUR
     Dates: start: 20210704, end: 20210705
  4. NOVORAPID [Concomitant]
     Active Substance: INSULIN ASPART
     Indication: TYPE 2 DIABETES MELLITUS
     Route: 058
     Dates: start: 20210627
  5. CORTANCYL [Concomitant]
     Active Substance: PREDNISONE
     Dosage: 40 MG/JOUR
     Dates: start: 20210702, end: 20210703
  6. ABASAGLAR [Concomitant]
     Active Substance: INSULIN GLARGINE
     Indication: TYPE 2 DIABETES MELLITUS
     Route: 058
     Dates: start: 20210705
  7. CORTANCYL [Concomitant]
     Active Substance: PREDNISONE
     Indication: COVID-19
     Dosage: 5 MG/JOUR LE MATIN
     Dates: start: 20210706
  8. CORTANCYL [Concomitant]
     Active Substance: PREDNISONE
     Dosage: 60 MG/JOUR
     Dates: start: 20210630, end: 20210701
  9. CORTANCYL [Concomitant]
     Active Substance: PREDNISONE
     Dosage: 60 MG/JOUR
     Dates: start: 20190510, end: 20191104

REACTIONS (2)
  - Vasoplegia syndrome [Recovered/Resolved]
  - Serum sickness [Recovered/Resolved]

NARRATIVE: CASE EVENT DATE: 20210622
